FAERS Safety Report 7932717-6 (Version None)
Quarter: 2011Q4

REPORT INFORMATION
  Report Type: 
  Country: None (occurrence: None)
  Receive Date: 20111122
  Receipt Date: 20111112
  Transmission Date: 20120403
  Serious: Yes (Other)
  Sender: FDA-Public Use
  Company Number: US-BAYER-201011114NA

PATIENT
  Age: 25 Year
  Sex: Female
  Weight: 86 kg

DRUGS (7)
  1. YAZ [Suspect]
     Dosage: UNK
     Route: 048
     Dates: start: 20000101, end: 20080501
  2. ZOLOFT [Concomitant]
     Dates: start: 20080101, end: 20100615
  3. YASMIN [Suspect]
     Indication: CONTRACEPTION
     Dosage: UNK
     Route: 048
     Dates: start: 19990101, end: 20080101
  4. SPRINTEC [Concomitant]
     Indication: ORAL CONTRACEPTION
     Dosage: UNK
     Route: 048
     Dates: start: 20080101, end: 20100101
  5. XANAX [Concomitant]
     Dates: start: 20080101, end: 20100615
  6. ORTHO CYCLEN-28 [Concomitant]
  7. TOPAMAX [Concomitant]
     Indication: HEADACHE

REACTIONS (9)
  - INJURY [None]
  - ANXIETY [None]
  - PAIN [None]
  - MENTAL DISORDER [None]
  - CHOLELITHIASIS [None]
  - SYNCOPE [None]
  - GALLBLADDER DISORDER [None]
  - CHOLECYSTITIS CHRONIC [None]
  - ROAD TRAFFIC ACCIDENT [None]
